FAERS Safety Report 4374058-2 (Version None)
Quarter: 2004Q2

REPORT INFORMATION
  Report Type: 
  Country: None (occurrence: None)
  Receive Date: 20040603
  Receipt Date: 20040524
  Transmission Date: 20050107
  Serious: Yes (Hospitalization)
  Sender: FDA-Public Use
  Company Number: 200412612BCC

PATIENT
  Age: 16 Year
  Sex: Female
  Weight: 61.2356 kg

DRUGS (3)
  1. MIDOL MAXIMUM STRENGTH TABLETS [Suspect]
     Dosage: 11000 MG, TOTAL DAILY, ORAL
     Route: 048
     Dates: start: 20040523, end: 20040524
  2. BENZODIAZEPINE (BENZODIAZEPINE DERIVATIVES) [Suspect]
  3. PHENOBARBITAL TAB [Suspect]

REACTIONS (7)
  - ABDOMINAL PAIN UPPER [None]
  - DIZZINESS [None]
  - DRUG SCREEN POSITIVE [None]
  - FEELING HOT [None]
  - INTERNATIONAL NORMALISED RATIO DECREASED [None]
  - MULTIPLE DRUG OVERDOSE [None]
  - PROTHROMBIN TIME PROLONGED [None]
